FAERS Safety Report 7201256-2 (Version None)
Quarter: 2010Q4

REPORT INFORMATION
  Report Type: 
  Country: None (occurrence: None)
  Receive Date: 20101229
  Receipt Date: 20101223
  Transmission Date: 20110411
  Serious: Yes (Death, Hospitalization, Other)
  Sender: FDA-Public Use
  Company Number: PHHY2010CH87115

PATIENT
  Age: 64 Year
  Sex: Male

DRUGS (12)
  1. SIMCORA [Suspect]
     Dosage: 20 MG, QD
     Route: 048
     Dates: end: 20101112
  2. ACTRAPID HUMAN [Concomitant]
     Dosage: UNK
     Route: 058
  3. FUROSEMIDE [Concomitant]
     Dosage: 20 MG, TID
  4. KONAKION [Concomitant]
     Dosage: 10 MG, QD
     Route: 042
  5. DOSPIR [Concomitant]
     Dosage: 1 MG 4 PER DAY
  6. IMPORTAL [Concomitant]
     Dosage: 20 ML 4 PER DAY
     Route: 048
  7. NOVALGIN [Concomitant]
     Dosage: 500 MG 4 PER DAY
     Route: 048
  8. INDERAL LA [Concomitant]
     Dosage: 80 MG, QD
     Route: 048
  9. SORBISTERIT-CALCIUM [Concomitant]
     Dosage: 20 G, BID
     Route: 048
  10. BECOZYM [Concomitant]
     Dosage: 1 DF, QD
     Route: 048
  11. BENERVA [Concomitant]
     Dosage: 1 DF, QD
     Route: 048
  12. SUPRADYN [Concomitant]
     Dosage: 1 DF, QD
     Route: 048

REACTIONS (15)
  - ALANINE AMINOTRANSFERASE INCREASED [None]
  - ASPARTATE AMINOTRANSFERASE INCREASED [None]
  - ASTHENIA [None]
  - BLOOD BILIRUBIN INCREASED [None]
  - BLOOD CREATINE PHOSPHOKINASE INCREASED [None]
  - BLOOD PHOSPHORUS INCREASED [None]
  - HAEMODYNAMIC INSTABILITY [None]
  - HYPERKALAEMIA [None]
  - LACTIC ACIDOSIS [None]
  - MYALGIA [None]
  - MYOGLOBIN BLOOD INCREASED [None]
  - RENAL FAILURE ACUTE [None]
  - RHABDOMYOLYSIS [None]
  - SEPSIS [None]
  - SHOCK HAEMORRHAGIC [None]
